FAERS Safety Report 10567992 (Version 2)
Quarter: 2014Q4

REPORT INFORMATION
  Report Type: Spontaneous
  Country: US (occurrence: None)
  Receive Date: 20141104
  Receipt Date: 20141118
  Transmission Date: 20150529
  Serious: Yes (Hospitalization)
  Sender: FDA-Public Use
  Company Number: 2014AP005445

PATIENT
  Age: 33 Year
  Sex: Female
  Weight: 42 kg

DRUGS (15)
  1. FERRIPROX [Suspect]
     Active Substance: DEFERIPRONE
     Indication: THALASSAEMIA
     Route: 048
     Dates: start: 20120116, end: 201410
  2. HUMALOG [Concomitant]
     Active Substance: INSULIN LISPRO
  3. SYNTHROID [Concomitant]
     Active Substance: LEVOTHYROXINE SODIUM
  4. LASIX [Concomitant]
     Active Substance: FUROSEMIDE
  5. MORPHINE (MORPHINE) [Concomitant]
  6. FERRIPROX [Suspect]
     Active Substance: DEFERIPRONE
     Indication: HAEMOCHROMATOSIS
     Route: 048
     Dates: start: 20120116, end: 201410
  7. LANTUS [Concomitant]
     Active Substance: INSULIN GLARGINE
  8. MAGNESIUM (MAGNESIUM) [Concomitant]
     Active Substance: MAGNESIUM
  9. METOPROLOL (METOPROLOL) [Concomitant]
     Active Substance: METOPROLOL
  10. PENCILLIN (BENZYLPENICILLIN) [Concomitant]
  11. DESFERAL (DEFEROXAMNE MESILATE) [Concomitant]
  12. FLONASE [Concomitant]
     Active Substance: FLUTICASONE PROPIONATE
  13. VITAMIN D (ERGOCALCIFEROL) [Concomitant]
     Active Substance: ERGOCALCIFEROL
  14. FERRIPROX [Suspect]
     Active Substance: DEFERIPRONE
     Indication: TRANSFUSION
     Route: 048
     Dates: start: 20120116, end: 201410
  15. POTASSIUM (POTASSIUM) [Concomitant]
     Active Substance: POTASSIUM

REACTIONS (6)
  - Fall [None]
  - Klebsiella test positive [None]
  - Urosepsis [None]
  - Tibia fracture [None]
  - Fibula fracture [None]
  - Dyspnoea [None]

NARRATIVE: CASE EVENT DATE: 20141018
